FAERS Safety Report 7316406-7 (Version None)
Quarter: 2011Q1

REPORT INFORMATION
  Report Type: 
  Country: None (occurrence: None)
  Receive Date: 20110225
  Receipt Date: 20110218
  Transmission Date: 20110831
  Serious: Yes (Other)
  Sender: FDA-Public Use
  Company Number: JP-MERCK-1102USA02944

PATIENT
  Age: 64 Year
  Sex: Male

DRUGS (1)
  1. PEPCID RPD [Suspect]
     Route: 048
     Dates: start: 20100601, end: 20100601

REACTIONS (1)
  - ERYTHEMA MULTIFORME [None]
